FAERS Safety Report 21963650 (Version 1)
Quarter: 2023Q1

REPORT INFORMATION
  Report Type: Spontaneous
  Country: US (occurrence: US)
  Receive Date: 20230207
  Receipt Date: 20230207
  Transmission Date: 20230417
  Serious: No
  Sender: FDA-Public Use
  Company Number: US-SA-SAC20230131001511

PATIENT
  Sex: Male

DRUGS (7)
  1. DUPIXENT [Suspect]
     Active Substance: DUPILUMAB
     Indication: Dermatitis atopic
     Dosage: 300 MG, Q4W
     Route: 058
     Dates: start: 202301
  2. AQUAPHOR (XIPAMIDE) [Concomitant]
     Active Substance: XIPAMIDE
  3. CETIRIZINE [Concomitant]
     Active Substance: CETIRIZINE HYDROCHLORIDE
  4. EUCRISA [Concomitant]
     Active Substance: CRISABOROLE
  5. GOLD BOND ORIGINAL STRENGTH POWDER [Concomitant]
     Active Substance: MENTHOL\ZINC OXIDE
  6. HYDROXYZINE [Concomitant]
     Active Substance: HYDROXYZINE HYDROCHLORIDE
  7. MOMETASONE FUROATE [Concomitant]
     Active Substance: MOMETASONE FUROATE

REACTIONS (4)
  - Dermatitis atopic [Not Recovered/Not Resolved]
  - Pruritus [Not Recovered/Not Resolved]
  - Erythema [Not Recovered/Not Resolved]
  - Therapeutic response decreased [Unknown]
